FAERS Safety Report 23694909 (Version 1)
Quarter: 2024Q2

REPORT INFORMATION
  Report Type: Report from Study
  Country: US (occurrence: US)
  Receive Date: 20240402
  Receipt Date: 20240402
  Transmission Date: 20240716
  Serious: Yes (Disabling)
  Sender: FDA-Public Use
  Company Number: US-ABBVIE-5699858

PATIENT
  Sex: Male

DRUGS (1)
  1. UBRELVY [Suspect]
     Active Substance: UBROGEPANT
     Indication: Product used for unknown indication
     Route: 048

REACTIONS (6)
  - Disability [Unknown]
  - Insomnia [Unknown]
  - Headache [Unknown]
  - Gastrointestinal disorder [Unknown]
  - Pneumonia [Recovering/Resolving]
  - Sinus disorder [Unknown]
